FAERS Safety Report 4817417-3 (Version None)
Quarter: 2005Q4

REPORT INFORMATION
  Report Type: 
  Country: None (occurrence: None)
  Receive Date: 20051031
  Receipt Date: 20051021
  Transmission Date: 20060501
  Serious: Yes (Disabling, Other)
  Sender: FDA-Public Use
  Company Number: 2005141931

PATIENT
  Age: 64 Year
  Sex: Male
  Weight: 82 kg

DRUGS (4)
  1. AMLODIPINE [Suspect]
     Indication: HYPERTENSION
     Dosage: 10 MG (DAILY), ORAL
     Route: 048
     Dates: start: 20050909, end: 20051006
  2. ATENOLOL [Concomitant]
  3. BENDROFLUMETHIAZIDE (BENDROFLUMETHIAZIDE) [Concomitant]
  4. RAMIPRIL [Concomitant]

REACTIONS (5)
  - ABNORMAL SENSATION IN EYE [None]
  - DIPLOPIA [None]
  - IMPAIRED DRIVING ABILITY [None]
  - VISUAL DISTURBANCE [None]
  - VISUAL FIELD DEFECT [None]
